FAERS Safety Report 13663689 (Version 1)
Quarter: 2017Q2

REPORT INFORMATION
  Report Type: Spontaneous
  Country: US (occurrence: US)
  Receive Date: 20170616
  Receipt Date: 20170616
  Transmission Date: 20170830
  Serious: No
  Sender: FDA-Public Use
  Company Number: None

PATIENT
  Age: 75 Year
  Sex: Male

DRUGS (2)
  1. HUMIRA [Suspect]
     Active Substance: ADALIMUMAB
     Indication: RASH PAPULOSQUAMOUS
     Dosage: 40MG (1 PEN) EVERY OTHER WEEK SUBCUTANEOUSLY
     Route: 058
     Dates: start: 20170428
  2. HUMIRA [Suspect]
     Active Substance: ADALIMUMAB
     Indication: PSORIASIS
     Dosage: 40MG (1 PEN) EVERY OTHER WEEK SUBCUTANEOUSLY
     Route: 058
     Dates: start: 20170428

REACTIONS (1)
  - Visual impairment [None]
